FAERS Safety Report 8857227 (Version 1)
Quarter: 2012Q4

REPORT INFORMATION
  Report Type: 
  Country: US (occurrence: US)
  Receive Date: 20121024
  Receipt Date: 20121024
  Transmission Date: 20130627
  Serious: Yes (Other)
  Sender: FDA-Public Use
  Company Number: US-TEVA-365516USA

PATIENT
  Age: 40 Year
  Sex: Male
  Weight: 122.58 kg

DRUGS (2)
  1. COPAXONE [Suspect]
     Indication: MULTIPLE SCLEROSIS
     Route: 058
     Dates: start: 201207, end: 201208
  2. COPAXONE [Suspect]
     Route: 058
     Dates: start: 2007, end: 201204

REACTIONS (1)
  - Testis cancer [Unknown]
